APPROVED DRUG PRODUCT: PALBOCICLIB
Active Ingredient: PALBOCICLIB
Strength: 75MG
Dosage Form/Route: TABLET;ORAL
Application: A215570 | Product #001
Applicant: ZYDUS LIFESCIENCES GLOBAL FZE
Approved: Jun 5, 2024 | RLD: No | RS: No | Type: DISCN